FAERS Safety Report 23963407 (Version 1)
Quarter: 2024Q2

REPORT INFORMATION
  Report Type: Spontaneous
  Country: US (occurrence: None)
  Receive Date: 20240610
  Receipt Date: 20240610
  Transmission Date: 20240716
  Serious: No
  Sender: FDA-Public Use
  Company Number: None

PATIENT
  Age: 53 Year
  Sex: Female
  Weight: 76.5 kg

DRUGS (1)
  1. EMGALITY [Suspect]
     Active Substance: GALCANEZUMAB-GNLM
     Indication: Migraine
     Dosage: OTHER QUANTITY : 2 INJECTION(S);?OTHER FREQUENCY : LOADING DOSE;?
     Route: 058
     Dates: start: 20240607, end: 20240607

REACTIONS (10)
  - Injection site pain [None]
  - Injection site pain [None]
  - Injection site haemorrhage [None]
  - Injection site pain [None]
  - Injection site rash [None]
  - Injection site erythema [None]
  - Paraesthesia [None]
  - Paraesthesia [None]
  - Migraine [None]
  - Headache [None]

NARRATIVE: CASE EVENT DATE: 20240607
